FAERS Safety Report 7770728-4 (Version None)
Quarter: 2011Q3

REPORT INFORMATION
  Report Type: 
  Country: None (occurrence: None)
  Receive Date: 20110922
  Receipt Date: 20110302
  Transmission Date: 20111222
  Serious: No
  Sender: FDA-Public Use
  Company Number: US-ASTRAZENECA-2011SE11805

PATIENT
  Sex: Male

DRUGS (1)
  1. SEROQUEL [Suspect]
     Route: 048

REACTIONS (9)
  - DEPRESSION [None]
  - THIRST [None]
  - ANGER [None]
  - PANIC ATTACK [None]
  - INCREASED APPETITE [None]
  - SOMNOLENCE [None]
  - PRURITUS GENERALISED [None]
  - BLOOD CHOLESTEROL INCREASED [None]
  - DRY MOUTH [None]
